FAERS Safety Report 7204379-7 (Version None)
Quarter: 2010Q4

REPORT INFORMATION
  Report Type: 
  Country: None (occurrence: None)
  Receive Date: 20101230
  Receipt Date: 20101216
  Transmission Date: 20110411
  Serious: Yes (Other)
  Sender: FDA-Public Use
  Company Number: PHHY2010DE86818

PATIENT
  Age: 55 Year
  Sex: Female

DRUGS (2)
  1. ZOMETA [Suspect]
     Indication: BREAST CANCER
     Route: 042
  2. CHEMOTHERAPEUTICS NOS [Concomitant]

REACTIONS (2)
  - BONE OPERATION [None]
  - OSTEONECROSIS OF JAW [None]
